FAERS Safety Report 4808892-9 (Version None)
Quarter: 2005Q4

REPORT INFORMATION
  Report Type: 
  Country: None (occurrence: None)
  Receive Date: 20051021
  Receipt Date: 20030310
  Transmission Date: 20060501
  Serious: Yes (Hospitalization)
  Sender: FDA-Public Use
  Company Number: DE_030310857

PATIENT
  Age: 58 Year
  Sex: Female

DRUGS (3)
  1. ZYPREXA [Suspect]
     Dosage: 20 MG/DAY
     Dates: start: 20020518, end: 20020710
  2. QUILONUM -  SLOW RELEASE (LITHIUM CARBONATE) [Concomitant]
  3. MELNEURIN (MELPERONE HYDROCHLORIDE) [Concomitant]

REACTIONS (1)
  - EOSINOPHILIA [None]
